FAERS Safety Report 21554448 (Version 3)
Quarter: 2023Q2

REPORT INFORMATION
  Report Type: Report from Study
  Country: BR (occurrence: BR)
  Receive Date: 20221104
  Receipt Date: 20230504
  Transmission Date: 20230721
  Serious: Yes (Other)
  Sender: FDA-Public Use
  Company Number: BR-JNJFOC-20221062054

PATIENT
  Age: 70 Year
  Sex: Female
  Weight: 65 kg

DRUGS (3)
  1. JANSSEN COVID-19 VACCINE [Suspect]
     Active Substance: AD26.COV2.S
     Indication: COVID-19 prophylaxis
     Dosage: DOSE 3 (FOURTH DOSE)
     Route: 065
  2. SIMPONI [Suspect]
     Active Substance: GOLIMUMAB
     Indication: Psoriatic arthropathy
     Dosage: 50.00 MG / 0.50 ML
     Route: 058
     Dates: start: 20210817, end: 202207
  3. SIMPONI [Suspect]
     Active Substance: GOLIMUMAB

REACTIONS (6)
  - Psoriatic arthropathy [Unknown]
  - Psoriasis [Not Recovered/Not Resolved]
  - Drug ineffective [Unknown]
  - COVID-19 [Unknown]
  - COVID-19 immunisation [Unknown]
  - Off label use [Unknown]

NARRATIVE: CASE EVENT DATE: 20220711
